FAERS Safety Report 13165691 (Version 1)
Quarter: 2017Q1

REPORT INFORMATION
  Report Type: Spontaneous
  Country: US (occurrence: US)
  Receive Date: 20170126
  Receipt Date: 20170126
  Transmission Date: 20170428
  Serious: Yes (Life-Threatening, Hospitalization, Other)
  Sender: FDA-Public Use
  Company Number: None

PATIENT
  Age: 56 Year
  Sex: Male
  Weight: 64.9 kg

DRUGS (3)
  1. VANCOMYCIN [Suspect]
     Active Substance: VANCOMYCIN
     Indication: STAPHYLOCOCCAL BACTERAEMIA
     Route: 042
     Dates: start: 20161113, end: 20161128
  2. FUROSEMIDE. [Suspect]
     Active Substance: FUROSEMIDE
     Indication: DISEASE RECURRENCE
     Route: 048
     Dates: start: 20161125, end: 20161128
  3. FUROSEMIDE. [Suspect]
     Active Substance: FUROSEMIDE
     Indication: ASCITES
     Route: 048
     Dates: start: 20161125, end: 20161128

REACTIONS (6)
  - Pruritus [None]
  - Skin exfoliation [None]
  - Rash [None]
  - Purpura [None]
  - Urticaria [None]
  - Linear IgA disease [None]

NARRATIVE: CASE EVENT DATE: 20161125
